FAERS Safety Report 9224805 (Version 2)
Quarter: 2013Q2

REPORT INFORMATION
  Report Type: Spontaneous
  Country: US (occurrence: None)
  Receive Date: 20130409
  Receipt Date: 20130415
  Transmission Date: 20140414
  Serious: Yes (Disabling, Other)
  Sender: FDA-Public Use
  Company Number: 1304-450

PATIENT
  Age: 88 Year
  Sex: Male
  Weight: 83.01 kg

DRUGS (15)
  1. EYLEA (AFLIBERCEPT) (INJECTION) (AFLIBERCEPT) [Suspect]
     Indication: AGE-RELATED MACULAR DEGENERATION
     Route: 031
  2. PRESERVISION AREDS (VITEYES) (TABLET) [Concomitant]
  3. TRILIPIX (CHOLINE FENOFIBRATE) [Concomitant]
  4. XYZAL [Concomitant]
  5. COMBIVENT (COMBIVENT) [Concomitant]
  6. TYLENOL ARTHRITIS (PARACETAMOL) (TABLET) [Concomitant]
  7. CALCIUM PLUS (CALCIUM) [Concomitant]
  8. FLUOXETINE (FLUOXETINE) [Concomitant]
  9. PROTONIX (PANTOPRAZOLE SODIUM SESQUIHYDRATE) [Concomitant]
  10. LEVOTHYROXINE (LEVOTHYROXINE) [Concomitant]
  11. NAMENDA (MEMANTINE HYDROCHLORIDE) [Concomitant]
  12. AVODART (DUTASTERIDE) [Concomitant]
  13. AMLODIPINE (AMLODIPINE) [Concomitant]
  14. ASPIRIN (ACETYLSALICYLIC ACID) [Concomitant]
  15. ALTACE (RAMIPRIL) [Concomitant]

REACTIONS (2)
  - Endophthalmitis [None]
  - Blindness transient [None]
